FAERS Safety Report 6402697-3 (Version None)
Quarter: 2009Q4

REPORT INFORMATION
  Report Type: 
  Country: None (occurrence: None)
  Receive Date: 20091009
  Receipt Date: 20091002
  Transmission Date: 20100525
  Serious: Yes (Disabling)
  Sender: FDA-Public Use
  Company Number: GXKR2009GB10871

PATIENT
  Age: 44 Year
  Sex: Male

DRUGS (11)
  1. DOXAZOSIN         (DOXAZOSIN) UNKNOWN [Suspect]
     Indication: HYPERTENSION
     Dosage: 4 MG, ORAL
     Route: 048
     Dates: start: 20030101, end: 20090715
  2. ALFACALCIDOL (ALFACALCIDOL) [Concomitant]
  3. ASPIRIN [Concomitant]
  4. ATORVASTATIN CALCIUM [Concomitant]
  5. BISOPROLOL FUMARATE [Concomitant]
  6. CYCLOSPORINE [Concomitant]
  7. GLYCERYL TRINITRATE (GLYCERYL TRINITRATE) [Concomitant]
  8. MYCOPHENOLATE MOFETIL [Concomitant]
  9. OMEPRAZOLE [Concomitant]
  10. RAMIPRIL [Concomitant]
  11. SODIUM BICARBONATE IN PLASTIC CONTAINER [Concomitant]

REACTIONS (3)
  - ABASIA [None]
  - BLOOD LACTIC ACID INCREASED [None]
  - PAIN IN EXTREMITY [None]
